FAERS Safety Report 16430466 (Version 1)
Quarter: 2019Q2

REPORT INFORMATION
  Report Type: Spontaneous
  Country: US (occurrence: US)
  Receive Date: 20190614
  Receipt Date: 20190614
  Transmission Date: 20190711
  Serious: No
  Sender: FDA-Public Use
  Company Number: US-BAYER-2019-114542

PATIENT
  Age: 21 Month

DRUGS (1)
  1. MIRALAX [Suspect]
     Active Substance: POLYETHYLENE GLYCOL 3350
     Dosage: 0.3 DF
     Route: 065

REACTIONS (2)
  - Product use issue [Unknown]
  - Incorrect dose administered [Unknown]
